FAERS Safety Report 8273903-8 (Version None)
Quarter: 2012Q2

REPORT INFORMATION
  Report Type: 
  Country: None (occurrence: None)
  Receive Date: 20120409
  Receipt Date: 20120330
  Transmission Date: 20120825
  Serious: Yes (Other)
  Sender: FDA-Public Use
  Company Number: 2012-001055

PATIENT
  Sex: Female

DRUGS (1)
  1. ACTONEL [Suspect]
     Dosage: 150 MG, ONE DOSE ONLY, ORAL
     Route: 048
     Dates: start: 20120209, end: 20120209

REACTIONS (7)
  - PAIN IN JAW [None]
  - MYALGIA [None]
  - ARTHRALGIA [None]
  - OESOPHAGEAL CARCINOMA [None]
  - JOINT CREPITATION [None]
  - DYSPHAGIA [None]
  - ODYNOPHAGIA [None]
